FAERS Safety Report 12934059 (Version 3)
Quarter: 2017Q1

REPORT INFORMATION
  Report Type: Spontaneous
  Country: DE (occurrence: DE)
  Receive Date: 20161111
  Receipt Date: 20170109
  Transmission Date: 20170428
  Serious: Yes (Life-Threatening, Hospitalization)
  Sender: FDA-Public Use
  Company Number: DE-PFIZER INC-2016522990

PATIENT
  Age: 20 Year
  Sex: Male
  Weight: 102 kg

DRUGS (1)
  1. VENLAFAXIN PFIZER RETARD [Suspect]
     Active Substance: VENLAFAXINE HYDROCHLORIDE
     Indication: SUICIDAL IDEATION
     Dosage: 10.5 G, UNK
     Route: 048
     Dates: start: 201610

REACTIONS (9)
  - Depression [Recovering/Resolving]
  - Intentional overdose [Recovering/Resolving]
  - Rhabdomyolysis [Recovering/Resolving]
  - Hepatic mass [Recovering/Resolving]
  - Transaminases increased [Recovering/Resolving]
  - Condition aggravated [Recovering/Resolving]
  - Suicidal ideation [Recovering/Resolving]
  - Generalised tonic-clonic seizure [Recovered/Resolved]
  - Blood glucose decreased [Recovering/Resolving]

NARRATIVE: CASE EVENT DATE: 201610
